FAERS Safety Report 8967777 (Version 1)
Quarter: 2012Q4

REPORT INFORMATION
  Report Type: 
  Country: US (occurrence: US)
  Receive Date: 20121217
  Receipt Date: 20121217
  Transmission Date: 20130627
  Serious: Yes (Hospitalization)
  Sender: FDA-Public Use
  Company Number: US-ASTRAZENECA-2012SE92310

PATIENT
  Age: 60 Year
  Sex: Female

DRUGS (3)
  1. SYMBICORT PMDI [Suspect]
     Route: 055
  2. SINGULAIR [Suspect]
     Route: 065
  3. ADVAIR [Suspect]
     Dosage: 100/50 UNKNOWN ROUTE, UNKNOWN DOSING

REACTIONS (2)
  - Asthma [Unknown]
  - Cyanosis [Unknown]
